FAERS Safety Report 19408480 (Version 1)
Quarter: 2021Q2

REPORT INFORMATION
  Report Type: Spontaneous
  Country: US (occurrence: US)
  Receive Date: 20210612
  Receipt Date: 20210612
  Transmission Date: 20210717
  Serious: Yes (Other)
  Sender: FDA-Public Use
  Company Number: US-ROCHE-2201055

PATIENT
  Sex: Male
  Weight: 44 kg

DRUGS (14)
  1. TAMIFLU [Suspect]
     Active Substance: OSELTAMIVIR PHOSPHATE
     Indication: PRODUCT USED FOR UNKNOWN INDICATION
     Route: 065
  2. ALLEGRA [Concomitant]
     Active Substance: FEXOFENADINE HYDROCHLORIDE
     Dosage: 30MG?5ML
     Route: 058
  3. ALBUTEROL. [Concomitant]
     Active Substance: ALBUTEROL
     Dosage: 2.5MG/3ML; AS NEEDED
     Dates: start: 201803
  4. MONTELUKAST SODIUM. [Concomitant]
     Active Substance: MONTELUKAST SODIUM
     Route: 048
  5. DULERA [Concomitant]
     Active Substance: FORMOTEROL FUMARATE DIHYDRATE\MOMETASONE FUROATE
     Dosage: 2 INHALATIONS
  6. IPRATROPIUM [Concomitant]
     Active Substance: IPRATROPIUM
     Dates: start: 201803
  7. PROMETHAZINE [Concomitant]
     Active Substance: PROMETHAZINE HYDROCHLORIDE
     Dosage: 6.25?10MG/ML AS NEEDED
  8. HYDROXYZINE HCL [Concomitant]
     Active Substance: HYDROXYZINE HYDROCHLORIDE
     Dosage: 10MG?5ML?5ML IN AM AND 10ML AT BED TIME
  9. PREDNISOLONE. [Concomitant]
     Active Substance: PREDNISOLONE
     Dosage: 15MG/ML?10ML EVRY OTHER A.M. 5?7DOSES
  10. AFRIN [Concomitant]
     Active Substance: OXYMETAZOLINE
     Route: 045
  11. CEFDINIR. [Concomitant]
     Active Substance: CEFDINIR
     Dosage: 250MG/ML;FOR 10 DAYS
  12. PROAIR HFA [Concomitant]
     Active Substance: ALBUTEROL SULFATE
     Dosage: 2?4 PUFF
  13. FLUTICASONE. [Concomitant]
     Active Substance: FLUTICASONE
     Dosage: SUSPENSION
     Route: 045
  14. MUCINEX [Concomitant]
     Active Substance: GUAIFENESIN
     Indication: COUGH

REACTIONS (5)
  - Viral upper respiratory tract infection [Unknown]
  - Mycoplasma infection [Unknown]
  - Rhinorrhoea [Unknown]
  - Otitis media [Not Recovered/Not Resolved]
  - Nasal congestion [Unknown]
